FAERS Safety Report 8546028-1 (Version None)
Quarter: 2012Q3

REPORT INFORMATION
  Report Type: 
  Country: None (occurrence: None)
  Receive Date: 20120727
  Receipt Date: 20120713
  Transmission Date: 20120928
  Serious: No
  Sender: FDA-Public Use
  Company Number: US-ASTRAZENECA-2012SE49436

PATIENT
  Age: 50 Year
  Sex: Male

DRUGS (2)
  1. NEXIUM [Suspect]
     Route: 048
  2. PROTONIX [Suspect]
     Route: 065

REACTIONS (4)
  - WEIGHT DECREASED [None]
  - THERAPEUTIC RESPONSE UNEXPECTED [None]
  - APHAGIA [None]
  - INTENTIONAL DRUG MISUSE [None]
